FAERS Safety Report 5210668-8 (Version None)
Quarter: 2007Q1

REPORT INFORMATION
  Report Type: 
  Country: None (occurrence: None)
  Receive Date: 20070117
  Receipt Date: 20070116
  Transmission Date: 20070707
  Serious: Yes (Hospitalization)
  Sender: FDA-Public Use
  Company Number: US-GLAXOSMITHKLINE-A0631612A

PATIENT
  Age: 68 Year
  Sex: Female
  Weight: 59.1 kg

DRUGS (7)
  1. REQUIP [Suspect]
     Indication: PARKINSON'S DISEASE
     Dosage: .75MG THREE TIMES PER DAY
     Route: 048
     Dates: start: 20061130, end: 20061213
  2. ALTACE [Concomitant]
  3. LIPITOR [Concomitant]
  4. ACTONEL [Concomitant]
  5. FOLIC ACID [Concomitant]
  6. ASPIRIN [Concomitant]
  7. VITAMIN CAP [Concomitant]

REACTIONS (6)
  - DIZZINESS [None]
  - FEELING ABNORMAL [None]
  - GASTROOESOPHAGEAL REFLUX DISEASE [None]
  - INSOMNIA [None]
  - NAUSEA [None]
  - SALIVARY HYPERSECRETION [None]
